FAERS Safety Report 23757979 (Version 1)
Quarter: 2024Q2

REPORT INFORMATION
  Report Type: Spontaneous
  Country: US (occurrence: US)
  Receive Date: 20240418
  Receipt Date: 20240418
  Transmission Date: 20240716
  Serious: No
  Sender: FDA-Public Use
  Company Number: US-002147023-NVSC2024US082564

PATIENT
  Age: 64 Year
  Sex: Male

DRUGS (1)
  1. LEQVIO [Suspect]
     Active Substance: INCLISIRAN SODIUM
     Indication: Low density lipoprotein decreased
     Dosage: GIVEN IN LEFT UPPER ARM (DAY 1, THEN AT 3MONTHS THEN EVERY 6 MONTHS THEREAFTER)
     Route: 058
     Dates: start: 20240119, end: 20240305

REACTIONS (1)
  - Dyspnoea exertional [Unknown]
